FAERS Safety Report 13511206 (Version 4)
Quarter: 2017Q3

REPORT INFORMATION
  Report Type: Report from Study
  Country: JP (occurrence: JP)
  Receive Date: 20170503
  Receipt Date: 20170724
  Transmission Date: 20171127
  Serious: Yes (Hospitalization)
  Sender: FDA-Public Use
  Company Number: JP-EISAI MEDICAL RESEARCH-EC-2017-027225

PATIENT
  Age: 74 Year
  Sex: Male
  Weight: 57 kg

DRUGS (16)
  1. DONEPEZIL. [Suspect]
     Active Substance: DONEPEZIL
     Indication: DEMENTIA WITH LEWY BODIES
     Route: 048
     Dates: start: 20160304, end: 20160317
  2. DONEPEZIL. [Suspect]
     Active Substance: DONEPEZIL
     Route: 048
     Dates: start: 20160318, end: 20160414
  3. THEOLONG [Concomitant]
     Active Substance: THEOPHYLLINE ANHYDROUS
  4. KIPRES [Concomitant]
     Active Substance: MONTELUKAST SODIUM
  5. ADOAIR [Concomitant]
     Active Substance: FLUTICASONE PROPIONATE\SALMETEROL XINAFOATE
  6. MEPTIN AIR [Concomitant]
     Active Substance: PROCATEROL HYDROCHLORIDE
  7. RIVOTRIL [Concomitant]
     Active Substance: CLONAZEPAM
  8. DONEPEZIL. [Suspect]
     Active Substance: DONEPEZIL
     Route: 048
     Dates: start: 20160708, end: 20170227
  9. DONEPEZIL. [Suspect]
     Active Substance: DONEPEZIL
     Route: 048
     Dates: start: 20170228, end: 20170309
  10. DONEPEZIL. [Suspect]
     Active Substance: DONEPEZIL
     Route: 048
     Dates: start: 20160415, end: 20160526
  11. DONEPEZIL. [Suspect]
     Active Substance: DONEPEZIL
     Route: 048
     Dates: start: 20160610, end: 20160707
  12. EDIROL [Concomitant]
     Active Substance: ELDECALCITOL
  13. DONEPEZIL. [Suspect]
     Active Substance: DONEPEZIL
     Route: 048
     Dates: start: 20160527, end: 20160609
  14. WARFARIN [Concomitant]
     Active Substance: WARFARIN
  15. SENNA [Concomitant]
     Active Substance: SENNA LEAF\SENNOSIDES\SENNOSIDES A AND B
  16. ATORVASTATIN CALCIUM HYDRATE [Concomitant]
     Active Substance: ATORVASTATIN CALCIUM

REACTIONS (1)
  - Hallucination, visual [Recovering/Resolving]

NARRATIVE: CASE EVENT DATE: 20161110
